FAERS Safety Report 10428047 (Version 6)
Quarter: 2015Q2

REPORT INFORMATION
  Report Type: Spontaneous
  Country: US (occurrence: US)
  Receive Date: 20140903
  Receipt Date: 20150615
  Transmission Date: 20150821
  Serious: Yes (Death, Hospitalization, Other)
  Sender: FDA-Public Use
  Company Number: US-009507513-1409USA000929

PATIENT
  Sex: Male
  Weight: 106.58 kg

DRUGS (2)
  1. JANUVIA [Suspect]
     Active Substance: SITAGLIPTIN PHOSPHATE
     Indication: TYPE 2 DIABETES MELLITUS
     Dosage: 100 MG, QD
     Route: 048
     Dates: start: 20080801, end: 20120702
  2. METFORMIN [Concomitant]
     Active Substance: METFORMIN HYDROCHLORIDE
     Indication: TYPE 2 DIABETES MELLITUS
     Dosage: 500 MG,QD-BID
     Dates: start: 20080703, end: 20100214

REACTIONS (15)
  - Coronary arterial stent insertion [Unknown]
  - Bipolar disorder [Unknown]
  - Metastases to liver [Unknown]
  - Cerebrovascular accident [Unknown]
  - Chronic obstructive pulmonary disease [Unknown]
  - Anxiety [Unknown]
  - Cough [Unknown]
  - Coronary artery disease [Unknown]
  - Malaise [Unknown]
  - Depression [Unknown]
  - Constipation [Unknown]
  - Drug ineffective [Unknown]
  - Pancreatic carcinoma metastatic [Fatal]
  - Sinus bradycardia [Unknown]
  - Chest pain [Unknown]

NARRATIVE: CASE EVENT DATE: 2009
